FAERS Safety Report 5144599-9 (Version None)
Quarter: 2006Q4

REPORT INFORMATION
  Report Type: 
  Country: None (occurrence: None)
  Receive Date: 20061031
  Receipt Date: 20061023
  Transmission Date: 20070319
  Serious: Yes (Death, Life-Threatening, Hospitalization, Other)
  Sender: FDA-Public Use
  Company Number: 430005N06JPN

PATIENT
  Age: 63 Year
  Sex: Male

DRUGS (11)
  1. NOVANTRONE [Suspect]
     Dosage: INTRAVENOUS
     Route: 042
     Dates: start: 20060525, end: 20060530
  2. MYLOTARG [Suspect]
     Dosage: 9 MG/M2, ONCE, INTRAVENOUS; SEE IMAGE
     Route: 042
     Dates: start: 20060405, end: 20060405
  3. MYLOTARG [Suspect]
     Dosage: 9 MG/M2, ONCE, INTRAVENOUS; SEE IMAGE
     Route: 042
     Dates: start: 20060427, end: 20060427
  4. CYTARABINE [Suspect]
     Dosage: INTRAVENOUS; SEE IMAGE
     Route: 042
     Dates: start: 20060525, end: 20060530
  5. ETOPOSIDE [Suspect]
     Dates: start: 20060525, end: 20060530
  6. FAMOTIDINE [Concomitant]
  7. LEVOFLOXACIN [Concomitant]
  8. FLUCONAZOLE [Concomitant]
  9. HACHIAZULE [Concomitant]
  10. LIDOCAINE [Concomitant]
  11. KETOPROFEN [Concomitant]

REACTIONS (4)
  - ACUTE MYELOID LEUKAEMIA [None]
  - DISEASE PROGRESSION [None]
  - DRUG INEFFECTIVE [None]
  - WHITE BLOOD CELL COUNT INCREASED [None]
